FAERS Safety Report 6125975-4 (Version None)
Quarter: 2009Q1

REPORT INFORMATION
  Report Type: 
  Country: None (occurrence: None)
  Receive Date: 20090320
  Receipt Date: 20090311
  Transmission Date: 20090719
  Serious: Yes (Other)
  Sender: FDA-Public Use
  Company Number: US-JNJFOC-20090303088

PATIENT
  Age: 12 Year
  Sex: Male

DRUGS (4)
  1. PREZISTA [Suspect]
     Indication: HIV INFECTION
     Route: 048
  2. RALTEGRAVIR [Suspect]
     Indication: HIV INFECTION
     Route: 065
  3. RITONAVIR [Concomitant]
     Indication: HIV INFECTION
     Route: 048
  4. ABACAVIR [Concomitant]
     Indication: HIV INFECTION
     Route: 065

REACTIONS (3)
  - INSOMNIA [None]
  - PERSONALITY CHANGE [None]
  - PSYCHOMOTOR HYPERACTIVITY [None]
